FAERS Safety Report 5578630-3 (Version None)
Quarter: 2008Q1

REPORT INFORMATION
  Report Type: 
  Country: None (occurrence: None)
  Receive Date: 20080102
  Receipt Date: 20071220
  Transmission Date: 20080703
  Serious: No
  Sender: FDA-Public Use
  Company Number: DE-ELI_LILLY_AND_COMPANY-DE200710005792

PATIENT
  Sex: Female
  Weight: 58 kg

DRUGS (2)
  1. OLANZAPINE [Suspect]
     Indication: DEPRESSION
     Dosage: 2.5 MG, DAILY (1/D)
     Route: 048
     Dates: start: 20070822
  2. FLUOXETINE HCL [Concomitant]
     Dosage: 20 MG, DAILY (1/D)
     Route: 048
     Dates: start: 20070822

REACTIONS (3)
  - BLOOD CHOLESTEROL INCREASED [None]
  - EOSINOPHILIA [None]
  - WEIGHT INCREASED [None]
